FAERS Safety Report 25279700 (Version 1)
Quarter: 2025Q2

REPORT INFORMATION
  Report Type: Spontaneous
  Country: PK (occurrence: PK)
  Receive Date: 20250507
  Receipt Date: 20250507
  Transmission Date: 20250717
  Serious: Yes (Death)
  Sender: PFIZER
  Company Number: PK-PFIZER INC-PV202400021895

PATIENT
  Age: 54 Year
  Sex: Female

DRUGS (13)
  1. IBRANCE [Suspect]
     Active Substance: PALBOCICLIB
     Indication: Breast cancer
     Route: 048
     Dates: start: 20230816, end: 202311
  2. IBRANCE [Suspect]
     Active Substance: PALBOCICLIB
     Route: 048
     Dates: end: 202411
  3. FULVESTRANT [Concomitant]
     Active Substance: FULVESTRANT
     Route: 030
  4. FULVESTRANT [Concomitant]
     Active Substance: FULVESTRANT
     Route: 030
     Dates: start: 20240708
  5. BONCAL [CALCITRIOL] [Concomitant]
     Dosage: 1 DF, ALTERNATE DAYS (FOR 120 DAYS)
  6. DEXLANSOPRAZOLE [Concomitant]
     Active Substance: DEXLANSOPRAZOLE
     Dosage: 60 MG, 1X/DAY (FOR 60 DAYS)
  7. FOLIC ACID [Concomitant]
     Active Substance: FOLIC ACID
     Dosage: 5 MG, 1X/DAY (FOR 60 DAYS)
  8. CALCIUM CARBONATE\SODIUM ALGINATE\SODIUM BICARBONATE [Concomitant]
     Active Substance: CALCIUM CARBONATE\SODIUM ALGINATE\SODIUM BICARBONATE
     Dosage: 1 ML, 3X/DAY (FOR 60 DAYS)
  9. ITOPRIDE HYDROCHLORIDE [Concomitant]
     Active Substance: ITOPRIDE HYDROCHLORIDE
     Dosage: 150 MG, 1X/DAY (FOR 60 DAYS)
  10. NEBIVOLOL [Concomitant]
     Active Substance: NEBIVOLOL
     Dosage: 5 MG, 1X/DAY (FOR 60 DAYS)
  11. PREGABALIN [Concomitant]
     Active Substance: PREGABALIN
     Dosage: 75 MG, 1X/DAY (AT BED TIME FOR 60 DAYS)
  12. TAPENTADOL [Concomitant]
     Active Substance: TAPENTADOL
     Dosage: 75 MG, 2X/DAY (FOR 60 DAYS)
  13. VITAMINS NOS [Concomitant]
     Active Substance: VITAMINS
     Dosage: 1 DF, ALTERNATE DAY (FOR 120 DAYS)

REACTIONS (3)
  - Death [Fatal]
  - Skin abrasion [Unknown]
  - Product prescribing error [Unknown]
